FAERS Safety Report 6260539-3 (Version None)
Quarter: 2009Q3

REPORT INFORMATION
  Report Type: 
  Country: None (occurrence: None)
  Receive Date: 20090708
  Receipt Date: 20090701
  Transmission Date: 20100115
  Serious: No
  Sender: FDA-Public Use
  Company Number: US-ASTRAZENECA-2009UW10506

PATIENT
  Age: 23423 Day
  Sex: Female
  Weight: 85.7 kg

DRUGS (5)
  1. CRESTOR [Suspect]
     Route: 048
     Dates: start: 20080305, end: 20090416
  2. AMLODIPINE [Concomitant]
  3. FIORICET [Concomitant]
  4. EFFEXOR [Concomitant]
  5. AQSEOL [Concomitant]

REACTIONS (1)
  - LIVER FUNCTION TEST ABNORMAL [None]
